FAERS Safety Report 6243799-4 (Version None)
Quarter: 2009Q2

REPORT INFORMATION
  Report Type: 
  Country: None (occurrence: None)
  Receive Date: 20090624
  Receipt Date: 20090618
  Transmission Date: 20091009
  Serious: Yes (Death, Hospitalization, Other)
  Sender: FDA-Public Use
  Company Number: PHHY2009BR24535

PATIENT
  Sex: Male

DRUGS (5)
  1. DIOVAN [Suspect]
     Indication: CARDIAC DISORDER
     Dosage: 1 DF (160 MG) A DAY
     Route: 048
     Dates: start: 20060101
  2. EBIXA [Concomitant]
     Indication: DEMENTIA ALZHEIMER'S TYPE
     Dosage: 1 DF AT NIGHT
     Route: 048
     Dates: start: 20070101
  3. OMEPRAZOLE [Concomitant]
  4. PROPRANOLOL HYDROCHLORIDE [Concomitant]
     Dosage: 40 MG, UNK
  5. DRUG THERAPY NOS [Concomitant]

REACTIONS (11)
  - ASPIRATION BRONCHIAL [None]
  - BLOOD PRESSURE FLUCTUATION [None]
  - CEREBROVASCULAR ACCIDENT [None]
  - DEMENTIA ALZHEIMER'S TYPE [None]
  - DYSPNOEA [None]
  - FEELING ABNORMAL [None]
  - NAUSEA [None]
  - OEDEMA PERIPHERAL [None]
  - PNEUMONIA [None]
  - SEDATION [None]
  - VOMITING [None]
